FAERS Safety Report 5961306-8 (Version None)
Quarter: 2008Q4

REPORT INFORMATION
  Report Type: 
  Country: None (occurrence: None)
  Receive Date: 20081119
  Receipt Date: 20080930
  Transmission Date: 20090506
  Serious: Yes (Death, Hospitalization)
  Sender: FDA-Public Use
  Company Number: 2008PL000187

PATIENT
  Age: 44 Year
  Sex: Male

DRUGS (10)
  1. IMURAN [Suspect]
     Indication: IMMUNOSUPPRESSANT DRUG THERAPY
     Dosage: PO
     Route: 048
  2. TACROLIMUS [Concomitant]
  3. PREDNISOLONE [Concomitant]
  4. MYCOPHENOLATE MOFETIL [Concomitant]
  5. PLEURAL EFFUSION [Concomitant]
  6. BRONCHIAL HAEMORRHAGE [Concomitant]
  7. DYSPNOEA [Concomitant]
  8. FEBRILE NEUTROPENIA [Concomitant]
  9. SEPSIS [Concomitant]
  10. MULTI-ORGAN FAILURE [Concomitant]

REACTIONS (6)
  - FEBRILE NEUTROPENIA [None]
  - HUMAN HERPESVIRUS 8 INFECTION [None]
  - KAPOSI'S SARCOMA [None]
  - MULTI-ORGAN FAILURE [None]
  - PANCYTOPENIA [None]
  - SEPSIS [None]
